FAERS Safety Report 6346865-8 (Version None)
Quarter: 2009Q3

REPORT INFORMATION
  Report Type: 
  Country: None (occurrence: None)
  Receive Date: 20090910
  Receipt Date: 20070717
  Transmission Date: 20100115
  Serious: Yes (Other)
  Sender: FDA-Public Use
  Company Number: US-ASTRAZENECA-2006UW08116

PATIENT
  Age: 51 Year
  Sex: Female
  Weight: 86.2 kg

DRUGS (13)
  1. SEROQUEL [Suspect]
     Indication: PANIC ATTACK
     Dosage: 50MG, 100MG, 150MG
     Route: 048
     Dates: start: 20040101, end: 20051201
  2. SEROQUEL [Suspect]
     Indication: BIPOLAR DISORDER
     Dosage: 50MG, 100MG, 150MG
     Route: 048
     Dates: start: 20040101, end: 20051201
  3. SEROQUEL [Suspect]
     Route: 048
     Dates: start: 20050721
  4. SEROQUEL [Suspect]
     Route: 048
     Dates: start: 20050721
  5. RISPERDAL [Concomitant]
     Dates: start: 20050101
  6. ZYPREXA [Concomitant]
     Dates: start: 20050101
  7. LIPITOR [Concomitant]
     Dates: start: 20040818
  8. HYDROXYZINE [Concomitant]
     Dates: start: 20040818
  9. BENADRYL [Concomitant]
     Dates: start: 20041124
  10. PREVACID [Concomitant]
     Route: 048
     Dates: start: 20041124
  11. VYTORIN [Concomitant]
     Dates: start: 20060201
  12. AVIANE-28 [Concomitant]
     Route: 048
     Dates: start: 20050501
  13. ZYRTEC [Concomitant]
     Route: 048
     Dates: start: 20050718

REACTIONS (3)
  - ALCOHOLIC PANCREATITIS [None]
  - HYPERCHOLESTEROLAEMIA [None]
  - PANCREATITIS [None]
